FAERS Safety Report 17113626 (Version 1)
Quarter: 2019Q4

REPORT INFORMATION
  Report Type: Spontaneous
  Country: US (occurrence: US)
  Receive Date: 20191205
  Receipt Date: 20191205
  Transmission Date: 20200122
  Serious: Yes (Other)
  Sender: FDA-Public Use
  Company Number: US-AMGEN-USASP2019201278

PATIENT
  Sex: Male

DRUGS (6)
  1. LEVOFLOXACIN. [Concomitant]
     Active Substance: LEVOFLOXACIN
  2. LYNPARZA [Concomitant]
     Active Substance: OLAPARIB
     Dosage: UNK
  3. NEULASTA [Suspect]
     Active Substance: PEGFILGRASTIM
     Indication: PRODUCT USED FOR UNKNOWN INDICATION
     Dosage: UNK
     Route: 065
  4. IBRANCE [Suspect]
     Active Substance: PALBOCICLIB
     Indication: BREAST CANCER FEMALE
     Dosage: 1 DOSAGE FORM, QD (DAILY FOR 21 DAYS)
     Route: 048
     Dates: start: 20171207
  5. LYNPARZA [Concomitant]
     Active Substance: OLAPARIB
     Dosage: 1 DOSAGE FORM, BID
  6. FUROSEMIDE. [Concomitant]
     Active Substance: FUROSEMIDE

REACTIONS (2)
  - Drug hypersensitivity [Unknown]
  - Pneumonia [Not Recovered/Not Resolved]
